FAERS Safety Report 24849424 (Version 1)
Quarter: 2025Q1

REPORT INFORMATION
  Report Type: Report from Study
  Country: CA (occurrence: CA)
  Receive Date: 20250116
  Receipt Date: 20250116
  Transmission Date: 20250408
  Serious: Yes (Other)
  Sender: SANDOZ
  Company Number: CA-SANDOZ-SDZ2025CA001677

PATIENT
  Sex: Female

DRUGS (3)
  1. PIRFENIDONE [Suspect]
     Active Substance: PIRFENIDONE
     Indication: Idiopathic pulmonary fibrosis
     Dosage: UNK, TID (NULL)
     Route: 065
  2. REMICADE [Concomitant]
     Active Substance: INFLIXIMAB
     Indication: Product used for unknown indication
     Route: 065
  3. XOLAIR [Concomitant]
     Active Substance: OMALIZUMAB
     Indication: Product used for unknown indication
     Route: 065

REACTIONS (8)
  - Interstitial lung disease [Unknown]
  - Arteriosclerosis coronary artery [Unknown]
  - Idiopathic pulmonary fibrosis [Unknown]
  - Disease progression [Unknown]
  - Colitis [Unknown]
  - Pneumonia [Unknown]
  - Chronic spontaneous urticaria [Unknown]
  - Mitral valve calcification [Unknown]
